FAERS Safety Report 7705163-8 (Version None)
Quarter: 2011Q3

REPORT INFORMATION
  Report Type: 
  Country: None (occurrence: None)
  Receive Date: 20110824
  Receipt Date: 20110815
  Transmission Date: 20111222
  Serious: Yes (Hospitalization)
  Sender: FDA-Public Use
  Company Number: US-BIOGENIDEC-2011BI031644

PATIENT
  Age: 59 Year
  Sex: Male

DRUGS (4)
  1. AVONEX [Suspect]
     Route: 030
     Dates: start: 20050309, end: 20071101
  2. TYLENOL-500 [Concomitant]
     Indication: PERIPHERAL ARTERIAL OCCLUSIVE DISEASE
     Route: 048
  3. AVONEX [Suspect]
     Indication: MULTIPLE SCLEROSIS
     Route: 030
     Dates: start: 20040725, end: 20050131
  4. AVONEX [Suspect]
     Route: 030
     Dates: start: 20080203

REACTIONS (2)
  - DEPRESSION [None]
  - PHLEBOPLASTY [None]
